FAERS Safety Report 26117932 (Version 1)
Quarter: 2025Q4

REPORT INFORMATION
  Report Type: Spontaneous
  Country: IN (occurrence: IN)
  Receive Date: 20251203
  Receipt Date: 20251203
  Transmission Date: 20260117
  Serious: Yes (Other)
  Sender: ABBVIE
  Company Number: IN-ABBVIE-6566449

PATIENT

DRUGS (2)
  1. DUOPA [Suspect]
     Active Substance: CARBIDOPA\LEVODOPA
     Indication: Parkinson^s disease
     Route: 050
  2. DUOPA [Suspect]
     Active Substance: CARBIDOPA\LEVODOPA

REACTIONS (23)
  - Deep brain stimulation [Unknown]
  - Therapeutic product effect decreased [Unknown]
  - Speech disorder [Unknown]
  - Dysphagia [Not Recovered/Not Resolved]
  - Choking [Unknown]
  - Dysphonia [Unknown]
  - Oropharyngeal discomfort [Unknown]
  - Somnolence [Unknown]
  - Fatigue [Unknown]
  - Hyperhidrosis [Unknown]
  - Vomiting [Not Recovered/Not Resolved]
  - Muscle rigidity [Unknown]
  - Freezing phenomenon [Unknown]
  - Gait disturbance [Unknown]
  - Mobility decreased [Unknown]
  - Quality of life decreased [Unknown]
  - Sensory disturbance [Unknown]
  - Burning sensation [Unknown]
  - Dyskinesia [Unknown]
  - Fall [Unknown]
  - Arthralgia [Unknown]
  - Hypoaesthesia [Unknown]
  - Headache [Unknown]

NARRATIVE: CASE EVENT DATE: 20130101
